FAERS Safety Report 16501228 (Version 1)
Quarter: 2019Q3

REPORT INFORMATION
  Report Type: Spontaneous
  Country: HR (occurrence: HR)
  Receive Date: 20190701
  Receipt Date: 20190701
  Transmission Date: 20191004
  Serious: Yes (Other)
  Sender: FDA-Public Use
  Company Number: HR-PFIZER INC-2019270823

PATIENT
  Sex: Female

DRUGS (2)
  1. PREGABALIN. [Suspect]
     Active Substance: PREGABALIN
     Dosage: UNK, SINGLE
     Route: 048
     Dates: start: 20190320, end: 20190320
  2. MISAR [ALPRAZOLAM] [Suspect]
     Active Substance: ALPRAZOLAM
     Dosage: UNK, SINGLE
     Route: 048
     Dates: start: 20190320, end: 20190320

REACTIONS (2)
  - Poisoning [Unknown]
  - Suicidal behaviour [Unknown]

NARRATIVE: CASE EVENT DATE: 20190320
